FAERS Safety Report 9934182 (Version 2)
Quarter: 2014Q1

REPORT INFORMATION
  Report Type: Spontaneous
  Country: US (occurrence: US)
  Receive Date: 20140228
  Receipt Date: 20140324
  Transmission Date: 20141002
  Serious: Yes (Other)
  Sender: FDA-Public Use
  Company Number: US-JNJFOC-20140216027

PATIENT
  Sex: Male
  Weight: 94.8 kg

DRUGS (2)
  1. REMICADE [Suspect]
     Indication: PSORIATIC ARTHROPATHY
     Route: 042
     Dates: start: 2006, end: 201305
  2. METHOTREXATE [Suspect]
     Indication: PRODUCT USED FOR UNKNOWN INDICATION
     Dosage: DOSE: 7.5 MG TO 20 MG.
     Route: 065
     Dates: start: 2006

REACTIONS (1)
  - Squamous cell carcinoma of lung [Not Recovered/Not Resolved]
